FAERS Safety Report 18701138 (Version 1)
Quarter: 2021Q1

REPORT INFORMATION
  Report Type: Spontaneous
  Country: GB (occurrence: GB)
  Receive Date: 20210105
  Receipt Date: 20210105
  Transmission Date: 20210419
  Serious: Yes (Other)
  Sender: FDA-Public Use
  Company Number: GB-MYLANLABS-2020M1106611

PATIENT
  Age: 53 Year
  Sex: Male
  Weight: 89.81 kg

DRUGS (1)
  1. NAPROXEN. [Suspect]
     Active Substance: NAPROXEN
     Indication: MUSCULOSKELETAL DISCOMFORT
     Dosage: 1000 MILLIGRAM, QD
     Route: 048
     Dates: start: 20201108, end: 20201115

REACTIONS (1)
  - Mouth ulceration [Not Recovered/Not Resolved]

NARRATIVE: CASE EVENT DATE: 20201115
